FAERS Safety Report 6969512-0 (Version None)
Quarter: 2010Q3

REPORT INFORMATION
  Report Type: 
  Country: None (occurrence: None)
  Receive Date: 20100907
  Receipt Date: 20100907
  Transmission Date: 20110219
  Serious: Yes (Other)
  Sender: FDA-Public Use
  Company Number: None

PATIENT
  Age: 83 Year
  Sex: Male
  Weight: 63.5036 kg

DRUGS (1)
  1. AMBIEN [Suspect]
     Dosage: 10 MG AS REQUIRED
     Dates: start: 20080101, end: 20100812

REACTIONS (3)
  - INCOHERENT [None]
  - MEMORY IMPAIRMENT [None]
  - SOMNAMBULISM [None]
